FAERS Safety Report 4819330-4 (Version None)
Quarter: 2005Q4

REPORT INFORMATION
  Report Type: 
  Country: None (occurrence: None)
  Receive Date: 20051031
  Receipt Date: 20050809
  Transmission Date: 20060501
  Serious: No
  Sender: FDA-Public Use
  Company Number: 2005PV000960

PATIENT
  Age: 66 Year
  Sex: Female

DRUGS (12)
  1. SYMLIN [Suspect]
     Indication: DIABETES MELLITUS NON-INSULIN-DEPENDENT
     Dosage: 120 MCG; TID; SC; 30 MCG; TID; SC
     Route: 058
     Dates: start: 20050710, end: 20050701
  2. SYMLIN [Suspect]
     Indication: DIABETES MELLITUS NON-INSULIN-DEPENDENT
     Dosage: 120 MCG; TID; SC; 30 MCG; TID; SC
     Route: 058
     Dates: start: 20050701, end: 20050731
  3. SYMLIN [Suspect]
     Indication: DIABETES MELLITUS NON-INSULIN-DEPENDENT
     Dosage: 120 MCG; TID; SC; 30 MCG; TID; SC
     Route: 058
     Dates: start: 20050801, end: 20050811
  4. SYMLIN [Suspect]
     Indication: DIABETES MELLITUS NON-INSULIN-DEPENDENT
     Dosage: 120 MCG; TID; SC; 30 MCG; TID; SC
     Route: 058
     Dates: start: 20050819
  5. LANTUS [Concomitant]
  6. NOVOLOG [Concomitant]
  7. PLAVIX [Concomitant]
  8. BP PILLS [Concomitant]
  9. METFORMIN [Concomitant]
  10. SYNTHROID [Concomitant]
  11. ASPIRIN [Concomitant]
  12. ZOCOR [Concomitant]

REACTIONS (5)
  - BLOOD GLUCOSE FLUCTUATION [None]
  - INJECTION SITE ERYTHEMA [None]
  - INJECTION SITE PRURITUS [None]
  - INJECTION SITE RASH [None]
  - INJECTION SITE URTICARIA [None]
